FAERS Safety Report 5409327-8 (Version None)
Quarter: 2007Q3

REPORT INFORMATION
  Report Type: 
  Country: None (occurrence: None)
  Receive Date: 20070809
  Receipt Date: 20070730
  Transmission Date: 20080115
  Serious: Yes (Hospitalization)
  Sender: FDA-Public Use
  Company Number: JP-JNJFOC-20070700322

PATIENT
  Sex: Male
  Weight: 63 kg

DRUGS (13)
  1. ITRACONAZOLE [Suspect]
     Indication: NAIL TINEA
     Dosage: PULSE THERAPY
     Route: 048
  2. PIRMENOL [Concomitant]
     Indication: TACHYARRHYTHMIA
     Route: 048
  3. PIRMENOL [Concomitant]
     Indication: ARRHYTHMIA
     Route: 048
  4. ASPIRIN [Concomitant]
     Indication: PROPHYLAXIS
     Route: 048
  5. ATORVASTATIN CALCIUM [Concomitant]
     Indication: HYPERLIPIDAEMIA
     Route: 048
  6. OLMESARTAN MEDOXOMIL [Concomitant]
     Indication: HYPERTENSION
     Route: 048
  7. AMLODIPINE BESYLATE [Concomitant]
     Indication: HYPERTENSION
     Route: 048
  8. CELIPROLOL HYDROCHLORIDE [Concomitant]
     Indication: HYPERTENSION
     Route: 048
  9. GLYBURIDE [Concomitant]
     Indication: DIABETES MELLITUS
     Route: 048
  10. BROTIZOLAM [Concomitant]
     Indication: INSOMNIA
     Route: 048
  11. PIOGLITAZONE HCL [Concomitant]
     Indication: DIABETES MELLITUS
     Route: 048
  12. METFORMIN HYDROCHLORIDE [Concomitant]
     Indication: DIABETES MELLITUS
     Route: 048
  13. IRSOGLADINE MALEATE [Concomitant]
     Indication: GASTRITIS
     Route: 048

REACTIONS (6)
  - ATRIAL FIBRILLATION [None]
  - BRADYCARDIA [None]
  - CHEST DISCOMFORT [None]
  - DYSPHORIA [None]
  - DYSPNOEA [None]
  - FEELING ABNORMAL [None]
